FAERS Safety Report 12471026 (Version 1)
Quarter: 2016Q2

REPORT INFORMATION
  Report Type: Spontaneous
  Country: GB (occurrence: GB)
  Receive Date: 20160616
  Receipt Date: 20160616
  Transmission Date: 20160815
  Serious: Yes (Disabling, Other)
  Sender: FDA-Public Use
  Company Number: GB-009507513-1606GBR006220

PATIENT
  Age: 57 Year
  Sex: Female
  Weight: 94 kg

DRUGS (2)
  1. SITAGLIPTIN PHOSPHATE [Suspect]
     Active Substance: SITAGLIPTIN PHOSPHATE
     Dates: start: 20160224
  2. ATORVASTATIN [Concomitant]
     Active Substance: ATORVASTATIN
     Dosage: 1 DF, QD
     Dates: start: 20150911

REACTIONS (2)
  - Pollakiuria [Unknown]
  - Bladder obstruction [Recovered/Resolved]

NARRATIVE: CASE EVENT DATE: 20160504
